FAERS Safety Report 9588366 (Version 1)
Quarter: 2013Q4

REPORT INFORMATION
  Report Type: Spontaneous
  Country: US (occurrence: US)
  Receive Date: 20131003
  Receipt Date: 20131003
  Transmission Date: 20140711
  Serious: No
  Sender: FDA-Public Use
  Company Number: US-AMGEN-USASP2012064006

PATIENT
  Sex: Male

DRUGS (9)
  1. ENBREL [Suspect]
     Indication: PRODUCT USED FOR UNKNOWN INDICATION
     Dosage: 50 MG, QWK
     Route: 058
  2. CELEBREX [Concomitant]
     Dosage: 200 MG, UNK
  3. FLONASE [Concomitant]
     Dosage: 0.05 %, UNK
  4. FLOVENT HFA [Concomitant]
     Dosage: 220 MCG, UNK
  5. SEREVENT [Concomitant]
     Dosage: 50 MCG, UNK
  6. FLAXSEED OIL [Concomitant]
     Dosage: UNK
  7. VITAMIN D3 [Concomitant]
     Dosage: UNK
  8. ASTAXANTHIN [Concomitant]
     Dosage: 4 MG, UNK
  9. MULTIVITAMINS, PLAIN [Concomitant]
     Dosage: UNK

REACTIONS (3)
  - Pain [Unknown]
  - Stress [Unknown]
  - Condition aggravated [Unknown]
